FAERS Safety Report 21165038 (Version 1)
Quarter: 2022Q3

REPORT INFORMATION
  Report Type: Spontaneous
  Country: FR (occurrence: FR)
  Receive Date: 20220803
  Receipt Date: 20220803
  Transmission Date: 20221026
  Serious: Yes (Hospitalization, Other)
  Sender: FDA-Public Use
  Company Number: FR-SANOFI-01209209

PATIENT
  Age: 63 Year

DRUGS (1)
  1. RIFAMPIN [Suspect]
     Active Substance: RIFAMPIN
     Indication: Device related infection
     Dosage: 900 MG / DAY / DURATION OF TREATMENT 2 DAYS / NUMBER OF VIALS REQUESTED 4 VIALS

REACTIONS (3)
  - Cardiac failure [Unknown]
  - Nausea [Unknown]
  - Vomiting [Unknown]
